FAERS Safety Report 4457789-5 (Version None)
Quarter: 2004Q3

REPORT INFORMATION
  Report Type: 
  Country: None (occurrence: None)
  Receive Date: 20040922
  Receipt Date: 20040908
  Transmission Date: 20050211
  Serious: Yes (Other)
  Sender: FDA-Public Use
  Company Number: 2004IM000833

PATIENT
  Age: 69 Year
  Sex: Female

DRUGS (1)
  1. ADVAFERON(A643_ INTERFERON ALFACON-1) [Suspect]
     Indication: HEPATITIS C
     Dosage: 12 MU; QD; SUBCUTANEOUS
     Route: 058
     Dates: start: 20040113

REACTIONS (2)
  - INJECTION SITE NECROSIS [None]
  - SKIN ULCER [None]
